FAERS Safety Report 7652221-2 (Version None)
Quarter: 2011Q3

REPORT INFORMATION
  Report Type: 
  Country: None (occurrence: None)
  Receive Date: 20110803
  Receipt Date: 20110722
  Transmission Date: 20111222
  Serious: Yes (Other)
  Sender: FDA-Public Use
  Company Number: US-BAYER-201040569NA

PATIENT
  Sex: Female
  Weight: 72.562 kg

DRUGS (3)
  1. YAZ [Suspect]
     Route: 048
     Dates: start: 20030101, end: 20090101
  2. ORTHO TRI-CYCLEN LO [Concomitant]
     Dosage: UNK
     Dates: end: 20090723
  3. YASMIN [Suspect]
     Route: 048
     Dates: start: 20030101, end: 20090101

REACTIONS (3)
  - GALLBLADDER DISORDER [None]
  - CHOLECYSTITIS CHRONIC [None]
  - PAIN [None]
